FAERS Safety Report 14473242 (Version 3)
Quarter: 2022Q1

REPORT INFORMATION
  Report Type: Spontaneous
  Country: PL (occurrence: PL)
  Receive Date: 20180201
  Receipt Date: 20220315
  Transmission Date: 20220423
  Serious: Yes (Other)
  Sender: FDA-Public Use
  Company Number: PL-AUROBINDO-AUR-APL-2018-003682

PATIENT
  Age: 70 Year
  Sex: Female

DRUGS (12)
  1. RIVASTIGMINE [Suspect]
     Active Substance: RIVASTIGMINE
     Indication: Product used for unknown indication
     Dosage: UNK
     Route: 065
  2. BIPERIDEN [Suspect]
     Active Substance: BIPERIDEN
     Indication: Parkinson^s disease
     Dosage: 4 MILLIGRAM
     Route: 065
  3. CLOZAPINE [Suspect]
     Active Substance: CLOZAPINE
     Indication: Product used for unknown indication
     Dosage: UNK
     Route: 065
  4. OXYBUTYNIN [Suspect]
     Active Substance: OXYBUTYNIN
     Indication: Urinary incontinence
     Dosage: UNK
     Route: 065
  5. AMANTADINE [Concomitant]
     Active Substance: AMANTADINE
     Indication: Product used for unknown indication
     Dosage: UNK
     Route: 065
  6. AMANTADINE [Concomitant]
     Active Substance: AMANTADINE
     Dosage: UNK ()
     Route: 065
  7. AMITRIPTYLINE [Concomitant]
     Active Substance: AMITRIPTYLINE
     Indication: Depression
     Dosage: UNK
     Route: 065
  8. AMITRIPTYLINE [Concomitant]
     Active Substance: AMITRIPTYLINE
     Indication: Sleep disorder
  9. AMOXICILLIN [Concomitant]
     Active Substance: AMOXICILLIN
     Indication: Pneumonia
     Dosage: UNK ()
     Route: 065
  10. RASAGILINE [Concomitant]
     Active Substance: RASAGILINE
     Indication: Product used for unknown indication
     Dosage: UNK
     Route: 065
  11. ROPINIROLE [Concomitant]
     Active Substance: ROPINIROLE
     Indication: Product used for unknown indication
     Dosage: UNK
     Route: 065
  12. CARBIDOPA\LEVODOPA [Concomitant]
     Active Substance: CARBIDOPA\LEVODOPA
     Indication: Parkinson^s disease
     Dosage: UNK
     Route: 065

REACTIONS (9)
  - Neutrophil count increased [Unknown]
  - Pneumonia [Unknown]
  - Mental impairment [Unknown]
  - C-reactive protein increased [Unknown]
  - Parkinson^s disease [Unknown]
  - White blood cell count increased [Unknown]
  - Hallucination, visual [Recovered/Resolved]
  - Cerebral atrophy [Unknown]
  - Anxiety [Unknown]
